FAERS Safety Report 13952883 (Version 1)
Quarter: 2017Q3

REPORT INFORMATION
  Report Type: Spontaneous
  Country: US (occurrence: US)
  Receive Date: 20170911
  Receipt Date: 20170911
  Transmission Date: 20171128
  Serious: No
  Sender: FDA-Public Use
  Company Number: US-TEVA-760152ACC

PATIENT
  Sex: Female

DRUGS (2)
  1. FENTANYL TRANSDERMAL SYSTEM [Suspect]
     Active Substance: FENTANYL
     Indication: NEUROPATHY PERIPHERAL
  2. FENTANYL TRANSDERMAL SYSTEM [Suspect]
     Active Substance: FENTANYL
     Indication: FIBROMYALGIA
     Route: 062
     Dates: start: 20170408, end: 20170411

REACTIONS (10)
  - Application site vesicles [Unknown]
  - Application site pain [Unknown]
  - Product adhesion issue [Unknown]
  - Product packaging issue [Unknown]
  - Application site erythema [Unknown]
  - Product leakage [Unknown]
  - Application site irritation [Unknown]
  - Application site exfoliation [Unknown]
  - Somnolence [Unknown]
  - Drug prescribing error [Unknown]

NARRATIVE: CASE EVENT DATE: 201704
